FAERS Safety Report 10172454 (Version 1)
Quarter: 2014Q2

REPORT INFORMATION
  Report Type: Spontaneous
  Country: US (occurrence: US)
  Receive Date: 20140515
  Receipt Date: 20140515
  Transmission Date: 20141212
  Serious: Yes (Other)
  Sender: FDA-Public Use
  Company Number: US-BAYER-2014-069628

PATIENT
  Sex: Female

DRUGS (4)
  1. ALEVE CAPLET [Suspect]
     Dosage: UNK
     Route: 048
     Dates: start: 20140415, end: 2014
  2. OMEPRAZOLE [Concomitant]
  3. LYRICA [Concomitant]
  4. GABAPENTIN [Concomitant]
     Indication: PAIN
     Dosage: 300 MG, QD

REACTIONS (7)
  - Gastric ulcer [Unknown]
  - Drug ineffective [None]
  - Abdominal pain upper [Unknown]
  - Diarrhoea [None]
  - Pain [None]
  - Gastric disorder [None]
  - Abdominal discomfort [None]
